FAERS Safety Report 5680947-9 (Version None)
Quarter: 2008Q1

REPORT INFORMATION
  Report Type: 
  Country: None (occurrence: None)
  Receive Date: 20080326
  Receipt Date: 20080317
  Transmission Date: 20080703
  Serious: Yes (Death)
  Sender: FDA-Public Use
  Company Number: DE-GENENTECH-257876

PATIENT
  Sex: Male
  Weight: 60 kg

DRUGS (2)
  1. BEVACIZUMAB [Suspect]
     Indication: NON-SMALL CELL LUNG CANCER
     Dosage: UNK, Q3W
     Route: 042
     Dates: start: 20080118, end: 20080303
  2. ERLOTINIB [Suspect]
     Indication: NON-SMALL CELL LUNG CANCER
     Dosage: 150 MG, QD
     Route: 048
     Dates: start: 20080118, end: 20080303

REACTIONS (1)
  - DEATH [None]
